FAERS Safety Report 7153339-3 (Version None)
Quarter: 2010Q4

REPORT INFORMATION
  Report Type: 
  Country: None (occurrence: None)
  Receive Date: 20101213
  Receipt Date: 20101202
  Transmission Date: 20110411
  Serious: Yes (Other)
  Sender: FDA-Public Use
  Company Number: RU-ROCHE-746738

PATIENT
  Age: 55 Year

DRUGS (5)
  1. AVASTIN [Suspect]
     Indication: RECTAL CANCER
     Dosage: 4 COURSES
     Route: 065
  2. XELODA [Suspect]
     Indication: RECTAL CANCER
     Dosage: DOSE: 1250 MG/M2 ON 1-14 DAYS, 7 DAYS APART, 4 COURSES
     Route: 065
     Dates: start: 20070401, end: 20070801
  3. XELODA [Suspect]
     Dosage: 6 COURSES
     Route: 065
  4. ELOXATIN [Suspect]
     Indication: RECTAL CANCER
     Dosage: 85 MG/M2 IV DRIP FOR 2 HOURS, 4 COURSES.
     Route: 041
  5. ELOXATIN [Suspect]
     Dosage: 6 COURSES
     Route: 041

REACTIONS (3)
  - DIARRHOEA [None]
  - NEUTROPENIA [None]
  - PALMAR-PLANTAR ERYTHRODYSAESTHESIA SYNDROME [None]
